FAERS Safety Report 8504038-4 (Version None)
Quarter: 2012Q3

REPORT INFORMATION
  Report Type: 
  Country: None (occurrence: None)
  Receive Date: 20120711
  Receipt Date: 20120706
  Transmission Date: 20120928
  Serious: Yes (Hospitalization, Other)
  Sender: FDA-Public Use
  Company Number: ES-ELI_LILLY_AND_COMPANY-ES201207001844

PATIENT
  Age: 79 Year
  Sex: Male

DRUGS (4)
  1. ALLOPURINOL [Concomitant]
  2. CIALIS [Suspect]
     Dosage: 5 MG, UNK
     Dates: start: 20100401, end: 20100901
  3. CIALIS [Suspect]
     Dosage: 20 MG, UNK
  4. SIMVASTATIN [Concomitant]

REACTIONS (1)
  - CARDIAC FAILURE [None]
